FAERS Safety Report 21336857 (Version 1)
Quarter: 2022Q3

REPORT INFORMATION
  Report Type: Spontaneous
  Country: US (occurrence: None)
  Receive Date: 20220914
  Receipt Date: 20220914
  Transmission Date: 20221027
  Serious: Yes (unspecified)
  Sender: FDA-Public Use
  Company Number: None

PATIENT
  Age: 57 Year
  Sex: Female
  Weight: 71.37 kg

DRUGS (10)
  1. MIRTAZAPINE [Suspect]
     Active Substance: MIRTAZAPINE
     Indication: Depression
     Dosage: FREQUENCY : DAILY;?
     Route: 048
     Dates: start: 20220707, end: 20220708
  2. Folic acid 1 mg by mouth daily [Concomitant]
  3. Vitamin b12 1000 mcg by mouth daily [Concomitant]
  4. vitamin d3 25 mcg by mouth daily [Concomitant]
  5. levothyroxine 25 mcg by mouth daily [Concomitant]
  6. multivitamin 1 tablet by mouth daily [Concomitant]
  7. galcanezumab 120mg IM every month [Concomitant]
  8. Clonazepam ODT 1mg by mouth as needed at bedtime [Concomitant]
  9. naratriptan 2.5 mg by mouth as needed [Concomitant]
  10. melatonin 3 mg by mouth as needed at bedtime [Concomitant]

REACTIONS (6)
  - Nausea [None]
  - Anxiety [None]
  - Restlessness [None]
  - Abnormal precordial movement [None]
  - Dystonia [None]
  - Akathisia [None]

NARRATIVE: CASE EVENT DATE: 20220708
